FAERS Safety Report 20009292 (Version 2)
Quarter: 2022Q4

REPORT INFORMATION
  Report Type: Spontaneous
  Country: US (occurrence: US)
  Receive Date: 20211028
  Receipt Date: 20221128
  Transmission Date: 20230112
  Serious: No
  Sender: FDA-Public Use
  Company Number: US-CHIESI-2021CHF03905

PATIENT
  Age: 22 Year
  Sex: Male
  Weight: 58.957 kg

DRUGS (10)
  1. REVCOVI [Suspect]
     Active Substance: ELAPEGADEMASE-LVLR
     Indication: Combined immunodeficiency
     Dosage: 4.5 ML, BIW
     Route: 030
     Dates: start: 20210630
  2. IMMUNE GLOBULIN NOS [Concomitant]
     Active Substance: IMMUNE GLOBULIN NOS
  3. ATOVAQUONE [Concomitant]
     Active Substance: ATOVAQUONE
  4. VITAMIN D NOS [Concomitant]
     Active Substance: VITAMIN D NOS
  5. VITAMINS [Concomitant]
     Active Substance: VITAMINS
  6. FOLIC ACID [Concomitant]
     Active Substance: FOLIC ACID
  7. DESMOPRESSIN [Concomitant]
     Active Substance: DESMOPRESSIN
  8. ONFI [Concomitant]
     Active Substance: CLOBAZAM
  9. CLONAZEPAM [Concomitant]
     Active Substance: CLONAZEPAM
  10. KEPPRA [Concomitant]
     Active Substance: LEVETIRACETAM

REACTIONS (2)
  - Weight decreased [Not Recovered/Not Resolved]
  - Platelet count decreased [Not Recovered/Not Resolved]

NARRATIVE: CASE EVENT DATE: 20210821
